FAERS Safety Report 6522796-5 (Version None)
Quarter: 2009Q4

REPORT INFORMATION
  Report Type: 
  Country: None (occurrence: None)
  Receive Date: 20091222
  Receipt Date: 20091203
  Transmission Date: 20100525
  Serious: Yes (Hospitalization)
  Sender: FDA-Public Use
  Company Number: 2009003740

PATIENT
  Age: 76 Year
  Sex: Male
  Weight: 53 kg

DRUGS (1)
  1. ERLOTINIB HYDROCHLORIDE [Suspect]
     Indication: LUNG ADENOCARCINOMA
     Dosage: 150 MG, QD, ORAL
     Route: 048
     Dates: start: 20090824, end: 20090926

REACTIONS (5)
  - ANAEMIA [None]
  - DIARRHOEA [None]
  - HYPOALBUMINAEMIA [None]
  - LIVER DISORDER [None]
  - OEDEMA PERIPHERAL [None]
